FAERS Safety Report 7611196-2 (Version None)
Quarter: 2011Q3

REPORT INFORMATION
  Report Type: 
  Country: None (occurrence: None)
  Receive Date: 20110707
  Receipt Date: 20110504
  Transmission Date: 20111222
  Serious: Yes (Other)
  Sender: FDA-Public Use
  Company Number: SIM_00062_2011

PATIENT
  Sex: Female
  Weight: 90.7194 kg

DRUGS (5)
  1. STYE EYE RELIEF (HOMEOPATHIC) [Suspect]
     Indication: HORDEOLUM
     Dosage: 2 GTT BID, OPTHALMIC
     Route: 047
     Dates: start: 20110415, end: 20110101
  2. LEVOTHYRODXINE [Concomitant]
  3. VITAMIN B-12 [Concomitant]
  4. MILOAXACAN [Concomitant]
  5. FOLIC ACID [Concomitant]

REACTIONS (3)
  - LIP SWELLING [None]
  - SWOLLEN TONGUE [None]
  - PHARYNGEAL OEDEMA [None]
